FAERS Safety Report 4686390-3 (Version None)
Quarter: 2005Q2

REPORT INFORMATION
  Report Type: 
  Country: None (occurrence: None)
  Receive Date: 20050609
  Receipt Date: 20050407
  Transmission Date: 20051028
  Serious: Yes (Life-Threatening, Disabling)
  Sender: FDA-Public Use
  Company Number: US-ROCHE-401500

PATIENT
  Age: 87 Year
  Sex: Female

DRUGS (2)
  1. CELLCEPT [Suspect]
     Indication: MYASTHENIA GRAVIS
     Route: 048
     Dates: start: 20000615, end: 20030715
  2. PREDNISONE TAB [Concomitant]
     Indication: MYASTHENIA GRAVIS
     Route: 048
     Dates: start: 19980315

REACTIONS (3)
  - CENTRAL NERVOUS SYSTEM LYMPHOMA [None]
  - LYMPHOPENIA [None]
  - THYROXINE DECREASED [None]
